FAERS Safety Report 9010833 (Version 1)
Quarter: 2013Q1

REPORT INFORMATION
  Report Type: Spontaneous
  Country: CN (occurrence: CN)
  Receive Date: 20130109
  Receipt Date: 20130109
  Transmission Date: 20140127
  Serious: Yes (Other)
  Sender: FDA-Public Use
  Company Number: CN-BAYER-2013-001815

PATIENT
  Age: 42 Year
  Sex: Female
  Weight: 60 kg

DRUGS (1)
  1. AVELOX [Suspect]
     Indication: UPPER RESPIRATORY TRACT INFECTION
     Dosage: 0.4 G, QD
     Route: 048
     Dates: start: 20100319, end: 20100319

REACTIONS (2)
  - Rash erythematous [Recovered/Resolved]
  - Fixed eruption [Recovered/Resolved]
